FAERS Safety Report 18027418 (Version 1)
Quarter: 2020Q3

REPORT INFORMATION
  Report Type: Spontaneous
  Country: US (occurrence: US)
  Receive Date: 20200716
  Receipt Date: 20200716
  Transmission Date: 20201103
  Serious: Yes (Other)
  Sender: FDA-Public Use
  Company Number: US-SUN PHARMACEUTICAL INDUSTRIES LTD-2019R1-205358

PATIENT
  Age: 71 Year
  Sex: Male

DRUGS (5)
  1. OCTREOTIDE. [Suspect]
     Active Substance: OCTREOTIDE
     Indication: GASTROOESOPHAGEAL VARICEAL HAEMORRHAGE PROPHYLAXIS
     Dosage: UNK, 50 MICROMETER/H BOLUS
     Route: 040
  2. CITALOPRAM [Concomitant]
     Active Substance: CITALOPRAM HYDROBROMIDE
     Indication: PRODUCT USED FOR UNKNOWN INDICATION
     Dosage: UNK
     Route: 065
  3. PANTOPRAZOLE [Concomitant]
     Active Substance: PANTOPRAZOLE
     Indication: PRODUCT USED FOR UNKNOWN INDICATION
     Dosage: UNK
     Route: 042
  4. INSULIN DETEMIR [Concomitant]
     Active Substance: INSULIN DETEMIR
     Indication: PRODUCT USED FOR UNKNOWN INDICATION
     Dosage: UNK
     Route: 065
  5. ALBUTEROL/IPRATROPIUM BROMIDE INHALER [Concomitant]
     Indication: PRODUCT USED FOR UNKNOWN INDICATION
     Dosage: UNK
     Route: 065

REACTIONS (2)
  - Sinus bradycardia [Recovered/Resolved]
  - Hypothermia [Recovered/Resolved]
